FAERS Safety Report 13991489 (Version 1)
Quarter: 2017Q3

REPORT INFORMATION
  Report Type: Spontaneous
  Country: US (occurrence: US)
  Receive Date: 20170920
  Receipt Date: 20170920
  Transmission Date: 20171128
  Serious: No
  Sender: FDA-Public Use
  Company Number: US-LUPIN PHARMACEUTICALS INC.-2016-03902

PATIENT
  Age: 22 Year
  Sex: Female

DRUGS (1)
  1. MISOPROSTOL. [Suspect]
     Active Substance: MISOPROSTOL
     Indication: PRODUCT USED FOR UNKNOWN INDICATION
     Dosage: 200 MICROGRAM, 8-10 HOURS PRIOR TO IUD PLACEMENT
     Route: 067

REACTIONS (2)
  - Product use in unapproved indication [Unknown]
  - Abdominal pain [Unknown]
